FAERS Safety Report 8810691 (Version 1)
Quarter: 2012Q4

REPORT INFORMATION
  Report Type: 
  Country: JP (occurrence: JP)
  Receive Date: 20120927
  Receipt Date: 20120927
  Transmission Date: 20130627
  Serious: Yes (Death, Other)
  Sender: FDA-Public Use
  Company Number: JP-ACCORD-014729

PATIENT
  Age: 26 Year
  Sex: Female

DRUGS (3)
  1. ETOPOSIDE [Suspect]
     Indication: MALIGNANT NEOPLASM OF OVARY
     Dosage: etoposide 100 mg/m2 on days 1 to 3, every 3 weeks
  2. CISPLATIN [Suspect]
     Indication: MALIGNANT NEOPLASM OF OVARY
     Dosage: cisplatin 15 mg/m2 on days 1 to 5, every 3 weeks
  3. BLEOMYCIN [Suspect]
     Indication: MALIGNANT NEOPLASM OF OVARY
     Dosage: bleomycin 20 mg/m2 on days 2, 9, and 16, every 3 weeks

REACTIONS (3)
  - Respiratory failure [Fatal]
  - Interstitial lung disease [Not Recovered/Not Resolved]
  - Off label use [Unknown]
